FAERS Safety Report 8919893 (Version 2)
Quarter: 2013Q1

REPORT INFORMATION
  Report Type: Spontaneous
  Country: US (occurrence: US)
  Receive Date: 20121121
  Receipt Date: 20130115
  Transmission Date: 20140127
  Serious: Yes (Hospitalization, Other)
  Sender: FDA-Public Use
  Company Number: US-PFIZER INC-2012291364

PATIENT
  Age: 42 Year
  Sex: Male
  Weight: 99 kg

DRUGS (3)
  1. PRISTIQ [Suspect]
     Indication: DEPRESSION
     Dosage: 50 MG, 1X/DAY
     Route: 048
     Dates: end: 2010
  2. LIPITOR [Concomitant]
     Dosage: UNK
  3. PROTONIX [Concomitant]
     Indication: DYSPEPSIA
     Dosage: UNK

REACTIONS (3)
  - Abdominal pain upper [Unknown]
  - Dizziness [Unknown]
  - Loss of consciousness [Unknown]
